FAERS Safety Report 17835274 (Version 2)
Quarter: 2020Q3

REPORT INFORMATION
  Report Type: Spontaneous
  Country: DE (occurrence: DE)
  Receive Date: 20200528
  Receipt Date: 20200718
  Transmission Date: 20201103
  Serious: Yes (Hospitalization, Other)
  Sender: FDA-Public Use
  Company Number: DE-AMGEN-DEUSP2020083097

PATIENT
  Age: 67 Year
  Sex: Female

DRUGS (1)
  1. PROLIA [Suspect]
     Active Substance: DENOSUMAB
     Indication: OSTEOPOROSIS POSTMENOPAUSAL
     Dosage: 60 MILLIGRAM, Q6MO
     Route: 058
     Dates: start: 2018

REACTIONS (6)
  - Diverticulitis [Unknown]
  - Pneumonia mycoplasmal [Unknown]
  - Chronic respiratory disease [Unknown]
  - Sinusitis [Unknown]
  - Selective IgG subclass deficiency [Not Recovered/Not Resolved]
  - Influenza [Unknown]
